FAERS Safety Report 16807769 (Version 2)
Quarter: 2019Q4

REPORT INFORMATION
  Report Type: Spontaneous
  Country: FR (occurrence: FR)
  Receive Date: 20190915
  Receipt Date: 20191127
  Transmission Date: 20200122
  Serious: Yes (Other)
  Sender: FDA-Public Use
  Company Number: PHHY2019FR210438

PATIENT
  Age: 23 Year
  Sex: Female
  Weight: 66 kg

DRUGS (4)
  1. FLAGYL [Suspect]
     Active Substance: METRONIDAZOLE\METRONIDAZOLE HYDROCHLORIDE
     Indication: TOOTH DISORDER
     Dosage: 25 DF, QD (125 MG/ 5ML 300 MG 3 INTAKES/DAY)
     Route: 048
     Dates: start: 20190822, end: 20190829
  2. FLAGYL [Suspect]
     Active Substance: METRONIDAZOLE\METRONIDAZOLE HYDROCHLORIDE
     Indication: TOOTH INFECTION
  3. AMOXICILLIN. [Suspect]
     Active Substance: AMOXICILLIN
     Indication: TOOTH DISORDER
     Dosage: 1 G, QD
     Route: 048
     Dates: start: 20190822, end: 20190828
  4. AMOXICILLIN. [Suspect]
     Active Substance: AMOXICILLIN
     Indication: ORAL INFECTION

REACTIONS (2)
  - Vulvovaginal mycotic infection [Not Recovered/Not Resolved]
  - Product contamination microbial [Unknown]

NARRATIVE: CASE EVENT DATE: 20190824
